FAERS Safety Report 12394676 (Version 4)
Quarter: 2016Q4

REPORT INFORMATION
  Report Type: Report from Study
  Country: US (occurrence: US)
  Receive Date: 20160523
  Receipt Date: 20161004
  Transmission Date: 20170207
  Serious: Yes (Hospitalization, Other)
  Sender: FDA-Public Use
  Company Number: US-BAYER-2015-392344

PATIENT
  Age: 69 Year
  Sex: Male
  Weight: 97.51 kg

DRUGS (11)
  1. ADEMPAS [Suspect]
     Active Substance: RIOCIGUAT
     Indication: PULMONARY HYPERTENSION
     Dosage: 2.5 MG, TID
     Route: 048
  2. ADEMPAS [Suspect]
     Active Substance: RIOCIGUAT
     Indication: PULMONARY HYPERTENSION
     Dosage: 2.5 MG, TID
     Route: 048
  3. ADEMPAS [Suspect]
     Active Substance: RIOCIGUAT
     Indication: PULMONARY HYPERTENSION
     Dosage: 1.5 MG, TID
     Route: 048
  4. ADEMPAS [Suspect]
     Active Substance: RIOCIGUAT
     Indication: PULMONARY HYPERTENSION
     Dosage: 2.5 MG, TID
     Route: 048
  5. ADEMPAS [Suspect]
     Active Substance: RIOCIGUAT
     Indication: PULMONARY HYPERTENSION
     Dosage: 2.5 MG, TID
     Route: 048
  6. XARELTO [Suspect]
     Active Substance: RIVAROXABAN
     Dosage: UNK
  7. ADEMPAS [Suspect]
     Active Substance: RIOCIGUAT
     Indication: PULMONARY HYPERTENSION
     Dosage: UNK
     Dates: start: 20150724
  8. ADEMPAS [Suspect]
     Active Substance: RIOCIGUAT
     Indication: PULMONARY HYPERTENSION
     Dosage: 2.5 MG, TID
     Route: 048
  9. COUMADIN [Concomitant]
     Active Substance: WARFARIN SODIUM
     Dosage: UNK
  10. ADEMPAS [Suspect]
     Active Substance: RIOCIGUAT
     Indication: PULMONARY HYPERTENSION
     Dosage: 1 MG, TID
     Route: 048
  11. ADEMPAS [Suspect]
     Active Substance: RIOCIGUAT
     Indication: PULMONARY HYPERTENSION
     Dosage: 2.5 MG, TID
     Route: 048

REACTIONS (28)
  - Haemorrhage [Unknown]
  - Abnormal weight gain [None]
  - Lung disorder [None]
  - Abdominal discomfort [Unknown]
  - Nasopharyngitis [Unknown]
  - Haemoglobin decreased [Unknown]
  - Cough [Unknown]
  - Pulmonary hypertension [Unknown]
  - Sensation of foreign body [Unknown]
  - Renal disorder [None]
  - Angiopathy [None]
  - Blood iron decreased [None]
  - Intestinal mass [Unknown]
  - Appendicectomy [Unknown]
  - Haemoptysis [Unknown]
  - Renal failure [None]
  - Dyspepsia [Unknown]
  - Blood count abnormal [None]
  - Cardiac disorder [None]
  - Oxygen saturation decreased [Recovering/Resolving]
  - Insomnia [Unknown]
  - Oedema [Unknown]
  - Bladder cancer [None]
  - Haemoglobin decreased [Recovered/Resolved]
  - Red blood cell count decreased [None]
  - Fatigue [Unknown]
  - Blood count abnormal [Unknown]
  - Appendicitis [Unknown]

NARRATIVE: CASE EVENT DATE: 20151101
